FAERS Safety Report 8402463-3 (Version None)
Quarter: 2012Q2

REPORT INFORMATION
  Report Type: 
  Country: None (occurrence: None)
  Receive Date: 20120601
  Receipt Date: 20120521
  Transmission Date: 20120825
  Serious: Yes (Hospitalization)
  Sender: FDA-Public Use
  Company Number: AR-AMGEN-ARGSP2011052141

PATIENT
  Age: 64 Year
  Sex: Female

DRUGS (5)
  1. IBUPROFEN [Concomitant]
     Dosage: UNK
  2. METFORMIN HCL [Concomitant]
     Dosage: UNK
  3. ENBREL [Suspect]
     Indication: RHEUMATOID ARTHRITIS
     Dosage: 50 MG, WEEKLY
     Route: 058
     Dates: start: 20110414, end: 20110901
  4. CARVEDILOL [Concomitant]
     Dosage: UNK
  5. TAURAL                             /00550801/ [Concomitant]
     Dosage: UNK

REACTIONS (1)
  - DIVERTICULUM [None]
